FAERS Safety Report 4605111-3 (Version None)
Quarter: 2005Q1

REPORT INFORMATION
  Report Type: 
  Country: None (occurrence: None)
  Receive Date: 20050214
  Receipt Date: 20041103
  Transmission Date: 20050727
  Serious: No
  Sender: FDA-Public Use
  Company Number: USA041183136

PATIENT
  Age: 49 Year
  Sex: Male

DRUGS (3)
  1. CIALIS [Suspect]
     Dosage: 20 MG
     Dates: start: 20041101
  2. GLYBURIDE [Concomitant]
  3. GLUCOPHAGE [Concomitant]

REACTIONS (4)
  - ANURIA [None]
  - BACK PAIN [None]
  - DRUG INEFFECTIVE [None]
  - RENAL PAIN [None]
